FAERS Safety Report 7177856-5 (Version None)
Quarter: 2010Q4

REPORT INFORMATION
  Report Type: 
  Country: None (occurrence: None)
  Receive Date: 20101220
  Receipt Date: 20101217
  Transmission Date: 20110411
  Serious: Yes (Death)
  Sender: FDA-Public Use
  Company Number: PHHY2010AU85966

PATIENT
  Age: 74 Year
  Sex: Male

DRUGS (7)
  1. MIRTAZAPINE [Suspect]
     Indication: MAJOR DEPRESSION
     Dosage: 15 MG
  2. MIRTAZAPINE [Suspect]
     Dosage: 15 MG, BID
  3. OLANZAPINE [Suspect]
     Indication: MAJOR DEPRESSION
     Dosage: 2.5 MG
  4. OLANZAPINE [Suspect]
     Dosage: 2.5 MG, BID
  5. QUETIAPINE [Suspect]
     Dosage: 25 MG, BID
  6. DONEPEZIL HCL [Suspect]
  7. LORAZEPAM [Suspect]

REACTIONS (4)
  - CEREBRAL HAEMORRHAGE [None]
  - CONFUSIONAL STATE [None]
  - HEADACHE [None]
  - SOMNOLENCE [None]
